FAERS Safety Report 8093140-X (Version None)
Quarter: 2012Q1

REPORT INFORMATION
  Report Type: 
  Country: None (occurrence: None)
  Receive Date: 20120128
  Receipt Date: 20110923
  Transmission Date: 20120608
  Serious: No
  Sender: FDA-Public Use
  Company Number: US-ABBOTT-11P-163-0841658-00

PATIENT
  Age: 57 Year
  Sex: Male

DRUGS (11)
  1. LIPITOR [Concomitant]
     Indication: HYPERLIPIDAEMIA
  2. SYNTHROID [Concomitant]
     Indication: HYPOTHYROIDISM
     Dosage: IN THE AM
  3. FISH OIL [Concomitant]
     Indication: SUPPLEMENTATION THERAPY
     Dosage: IN THE AM
  4. VITAMIN D [Concomitant]
     Indication: SUPPLEMENTATION THERAPY
     Dosage: IN THE AM
     Route: 048
  5. HUMIRA [Suspect]
     Dates: start: 20110701
  6. VITAMIN D [Concomitant]
     Indication: PSORIASIS
  7. FISH OIL [Concomitant]
     Indication: PSORIASIS
  8. ALLERGY SHOTS [Concomitant]
     Indication: HYPERSENSITIVITY
  9. HUMIRA [Suspect]
     Indication: PSORIASIS
     Dates: start: 20110601
  10. LIPITOR [Concomitant]
     Indication: BLOOD CHOLESTEROL INCREASED
     Route: 048
  11. NASACORT [Concomitant]
     Indication: HYPERSENSITIVITY
     Dosage: 2 SQUIRTS IN NOSE
     Route: 045

REACTIONS (9)
  - INJECTION SITE PAIN [None]
  - DRUG EFFECT DECREASED [None]
  - WRONG TECHNIQUE IN DRUG USAGE PROCESS [None]
  - SKIN EXFOLIATION [None]
  - INCORRECT PRODUCT STORAGE [None]
  - INJECTION SITE EXTRAVASATION [None]
  - DRY SKIN [None]
  - PRURITUS [None]
  - PSORIASIS [None]
